FAERS Safety Report 8178187-7 (Version None)
Quarter: 2012Q1

REPORT INFORMATION
  Report Type: 
  Country: None (occurrence: None)
  Receive Date: 20120301
  Receipt Date: 20120222
  Transmission Date: 20120608
  Serious: Yes (Life-Threatening, Hospitalization, Disabling)
  Sender: FDA-Public Use
  Company Number: US-JNJFOC-20120113478

PATIENT
  Sex: Female
  Weight: 81.65 kg

DRUGS (13)
  1. PREDNISONE TAB [Concomitant]
  2. SPIRONOLACTONE [Concomitant]
  3. PANTOPRAZOLE SODIUM [Concomitant]
  4. STELARA [Suspect]
     Indication: PSORIASIS
     Route: 058
     Dates: start: 20110223, end: 20111011
  5. JANUVIA [Concomitant]
  6. DOXEPIN HCL [Concomitant]
  7. BENICAR [Concomitant]
  8. CITALOPRAM HYDROBROMIDE [Concomitant]
  9. CRESTOR [Concomitant]
  10. MOTRIN [Concomitant]
  11. METFORMIN HCL [Concomitant]
  12. FLOVENT [Concomitant]
  13. FUROSEMIDE [Concomitant]

REACTIONS (1)
  - CEREBROVASCULAR ACCIDENT [None]
